FAERS Safety Report 6808920-5 (Version None)
Quarter: 2010Q2

REPORT INFORMATION
  Report Type: 
  Country: None (occurrence: None)
  Receive Date: 20100630
  Receipt Date: 20091007
  Transmission Date: 20101027
  Serious: Yes (Other)
  Sender: FDA-Public Use
  Company Number: US-PFIZER INC-2009281208

PATIENT

DRUGS (2)
  1. VIAGRA [Suspect]
  2. XANAX [Suspect]

REACTIONS (2)
  - ANXIETY [None]
  - HYPERTENSION [None]
